FAERS Safety Report 16337042 (Version 1)
Quarter: 2019Q2

REPORT INFORMATION
  Report Type: Spontaneous
  Country: FR (occurrence: FR)
  Receive Date: 20190521
  Receipt Date: 20190521
  Transmission Date: 20190711
  Serious: Yes (Hospitalization)
  Sender: FDA-Public Use
  Company Number: FR-ROCHE-2321126

PATIENT
  Age: 73 Year
  Sex: Male
  Weight: 110 kg

DRUGS (2)
  1. ZELBORAF [Suspect]
     Active Substance: VEMURAFENIB
     Indication: METASTASES TO SKIN
     Route: 048
     Dates: start: 20181130, end: 20181217
  2. COTELLIC [Suspect]
     Active Substance: COBIMETINIB
     Indication: METASTASES TO SKIN
     Route: 048
     Dates: start: 20181130, end: 20181217

REACTIONS (5)
  - Rhabdomyolysis [Recovered/Resolved]
  - Rash erythematous [Recovered/Resolved]
  - Lung disorder [Recovered/Resolved]
  - Transaminases increased [Recovered/Resolved]
  - Acute kidney injury [Recovered/Resolved]

NARRATIVE: CASE EVENT DATE: 20181216
